FAERS Safety Report 6578468-4 (Version None)
Quarter: 2010Q1

REPORT INFORMATION
  Report Type: 
  Country: None (occurrence: None)
  Receive Date: 20100211
  Receipt Date: 20100209
  Transmission Date: 20100710
  Serious: Yes (Life-Threatening, Disabling)
  Sender: FDA-Public Use
  Company Number: TH-ROCHE-674376

PATIENT
  Sex: Female
  Weight: 49.1 kg

DRUGS (10)
  1. BLINDED BEVACIZUMAB [Suspect]
     Indication: DIFFUSE LARGE B-CELL LYMPHOMA
     Route: 042
     Dates: start: 20091013, end: 20100129
  2. RITUXIMAB [Suspect]
     Indication: DIFFUSE LARGE B-CELL LYMPHOMA
     Route: 065
  3. CYCLOPHOSPHAMIDE [Suspect]
     Indication: DIFFUSE LARGE B-CELL LYMPHOMA
     Route: 065
  4. DOXORUBICIN HCL [Suspect]
     Indication: DIFFUSE LARGE B-CELL LYMPHOMA
     Route: 065
  5. VINCRISTINE [Suspect]
     Indication: DIFFUSE LARGE B-CELL LYMPHOMA
     Route: 065
  6. PREDNISOLONE [Suspect]
     Indication: DIFFUSE LARGE B-CELL LYMPHOMA
     Route: 065
  7. MOTILIUM [Concomitant]
     Dates: start: 20100108, end: 20100117
  8. OMEPRAZOLE [Concomitant]
     Dates: start: 20100108, end: 20100117
  9. SENOKOT [Concomitant]
     Dates: start: 20100108
  10. FERROUS SULFATE TAB [Concomitant]
     Dosage: DRUG REPORTED: FESO4
     Dates: start: 20100108

REACTIONS (2)
  - PARTIAL SEIZURES [None]
  - SUBDURAL HAEMATOMA [None]
